FAERS Safety Report 24630991 (Version 1)
Quarter: 2024Q4

REPORT INFORMATION
  Report Type: Spontaneous
  Country: US (occurrence: None)
  Receive Date: 20241115
  Receipt Date: 20241115
  Transmission Date: 20250115
  Serious: Yes (Hospitalization)
  Sender: Public
  Company Number: None

PATIENT
  Sex: 0

DRUGS (1)
  1. TALQUETAMAB [Suspect]
     Active Substance: TALQUETAMAB

REACTIONS (7)
  - Cytokine release syndrome [None]
  - Pseudomonal bacteraemia [None]
  - Hypotension [None]
  - Shock [None]
  - Disease progression [None]
  - Therapy non-responder [None]
  - Sepsis [None]
